FAERS Safety Report 24138451 (Version 2)
Quarter: 2024Q3

REPORT INFORMATION
  Report Type: Spontaneous
  Country: CA (occurrence: CA)
  Receive Date: 20240725
  Receipt Date: 20240730
  Transmission Date: 20241017
  Serious: Yes (Other)
  Sender: BAUSCH AND LOMB
  Company Number: CA-BAUSCH-BL-2024-011368

PATIENT

DRUGS (2)
  1. FLUOROURACIL [Suspect]
     Active Substance: FLUOROURACIL
     Indication: Squamous cell carcinoma of head and neck
     Route: 033
  2. CISPLATIN [Suspect]
     Active Substance: CISPLATIN
     Indication: Squamous cell carcinoma of head and neck
     Dosage: INJECTION, BP SINGLE DOSE VIALS. 10MG/10ML, 50MG/50ML AND 100MG/100ML.PRESERVATIVE-FREE.
     Route: 042

REACTIONS (3)
  - Fatigue [Unknown]
  - Febrile neutropenia [Unknown]
  - Nausea [Unknown]
